FAERS Safety Report 8998111 (Version 1)
Quarter: 2013Q1

REPORT INFORMATION
  Report Type: Spontaneous
  Country: US (occurrence: US)
  Receive Date: 20130104
  Receipt Date: 20130104
  Transmission Date: 20140127
  Serious: Yes (Hospitalization)
  Sender: FDA-Public Use
  Company Number: US-009507513-1301USA000958

PATIENT
  Age: 49 Year
  Sex: Female

DRUGS (10)
  1. SINGULAIR [Suspect]
  2. ROBAXIN [Suspect]
  3. SOLU-MEDROL [Suspect]
  4. FUROSEMIDE [Suspect]
  5. THEO-DUR [Suspect]
  6. HUMIBID [Suspect]
  7. ROCEPHIN [Suspect]
  8. PREDNISONE [Suspect]
  9. ALBUTEROL [Concomitant]
  10. FLOVENT [Concomitant]

REACTIONS (5)
  - Urticaria [Unknown]
  - Rash pruritic [Unknown]
  - Rash maculo-papular [Unknown]
  - Joint swelling [Unknown]
  - Drug eruption [Unknown]
